FAERS Safety Report 8416106-6 (Version None)
Quarter: 2012Q2

REPORT INFORMATION
  Report Type: 
  Country: None (occurrence: None)
  Receive Date: 20120323
  Receipt Date: 20111220
  Transmission Date: 20120825
  Serious: Yes (Hospitalization, Other)
  Sender: FDA-Public Use
  Company Number: 163-21880-11122997

PATIENT
  Age: 91 Year
  Sex: Female

DRUGS (14)
  1. ASPIRIN [Concomitant]
  2. GEMFIBROZIL [Concomitant]
  3. QVAR [Concomitant]
  4. SINGULAIR [Concomitant]
  5. PROCARDIA [Concomitant]
  6. PEPCID [Concomitant]
  7. METOPROLOL TARTRATE [Concomitant]
  8. REVLIMID [Suspect]
     Indication: MULTIPLE MYELOMA
     Dosage: 15 MG, QD, PO
     Route: 048
     Dates: start: 20110922, end: 20111005
  9. NIFEDIPINE [Concomitant]
  10. MULTIVITAMIN [Concomitant]
  11. CALCIUM [Concomitant]
  12. FERROUS SULFATE TAB [Concomitant]
  13. BECLOMETHASONE DIPROPIONATE [Concomitant]
  14. METAMUCIL (METAMUCIL ^PROCTER + GAMBLE^ [Concomitant]

REACTIONS (2)
  - ANAEMIA [None]
  - THROMBOCYTOPENIA [None]
